FAERS Safety Report 24004746 (Version 1)
Quarter: 2024Q2

REPORT INFORMATION
  Report Type: Spontaneous
  Country: JP (occurrence: JP)
  Receive Date: 20240624
  Receipt Date: 20240624
  Transmission Date: 20240716
  Serious: Yes (Hospitalization)
  Sender: FDA-Public Use
  Company Number: JP-TAKEDA-2024TJP009204

PATIENT
  Sex: Male

DRUGS (1)
  1. LEUPLIN [Suspect]
     Active Substance: LEUPROLIDE ACETATE
     Indication: Product used for unknown indication
     Dosage: UNK?INJECTION KIT 22.5 MG
     Route: 058
     Dates: start: 20201019

REACTIONS (2)
  - Haematuria [Unknown]
  - Induration [Unknown]

NARRATIVE: CASE EVENT DATE: 20240501
